FAERS Safety Report 9404541 (Version 1)
Quarter: 2013Q3

REPORT INFORMATION
  Report Type: Spontaneous
  Country: US (occurrence: US)
  Receive Date: 20130717
  Receipt Date: 20130717
  Transmission Date: 20140515
  Serious: Yes (Other)
  Sender: FDA-Public Use
  Company Number: US-ASTELLAS-2013US007413

PATIENT
  Sex: Female
  Weight: 79 kg

DRUGS (7)
  1. VESICARE [Suspect]
     Indication: PRODUCT USED FOR UNKNOWN INDICATION
     Dosage: 10 MG, UID/QD
     Route: 048
     Dates: start: 2010
  2. FLUOXETINE [Concomitant]
     Indication: DEPRESSION
     Dosage: 20 MG, TID
     Route: 048
  3. ADDERALL [Concomitant]
     Indication: ATTENTION DEFICIT/HYPERACTIVITY DISORDER
     Dosage: 20 MG, BID
     Route: 048
  4. ESTROPIPATE [Concomitant]
     Indication: HORMONE REPLACEMENT THERAPY
     Dosage: 0.75 MG, UID/QD
     Route: 048
  5. ZOCOR [Concomitant]
     Indication: BLOOD CHOLESTEROL INCREASED
     Dosage: 20 MG, UID/QD
     Route: 048
  6. AMBIEN [Concomitant]
     Indication: SLEEP DISORDER
     Dosage: 10 MG, QHS
     Route: 048
  7. CELEBREX [Concomitant]
     Indication: ARTHRITIS
     Dosage: 200 MG, UID/QD
     Route: 048

REACTIONS (1)
  - Hip surgery [Unknown]
